FAERS Safety Report 15042621 (Version 12)
Quarter: 2018Q4

REPORT INFORMATION
  Report Type: Report from Study
  Country: US (occurrence: US)
  Receive Date: 20180621
  Receipt Date: 20181106
  Transmission Date: 20190204
  Serious: Yes (Hospitalization, Other)
  Sender: FDA-Public Use
  Company Number: US-GILEAD-2018-0341790

PATIENT
  Age: 61 Year
  Sex: Female

DRUGS (4)
  1. UPTRAVI [Concomitant]
     Active Substance: SELEXIPAG
  2. AMBRISENTAN [Suspect]
     Active Substance: AMBRISENTAN
     Indication: PRODUCT USED FOR UNKNOWN INDICATION
     Dosage: 10 MG, QD
     Route: 065
     Dates: start: 201206
  3. ADEMPAS [Concomitant]
     Active Substance: RIOCIGUAT
  4. METHOTREXATE. [Concomitant]
     Active Substance: METHOTREXATE

REACTIONS (10)
  - Pulmonary arterial pressure increased [Unknown]
  - Myalgia [Unknown]
  - Tremor [Not Recovered/Not Resolved]
  - Vomiting [Unknown]
  - Limb discomfort [Unknown]
  - Diarrhoea [Not Recovered/Not Resolved]
  - Malaise [Not Recovered/Not Resolved]
  - Vomiting [Recovering/Resolving]
  - Nausea [Not Recovered/Not Resolved]
  - Rheumatoid arthritis [Unknown]

NARRATIVE: CASE EVENT DATE: 2016
